FAERS Safety Report 7687685-1 (Version None)
Quarter: 2011Q3

REPORT INFORMATION
  Report Type: 
  Country: None (occurrence: None)
  Receive Date: 20110817
  Receipt Date: 20110806
  Transmission Date: 20111222
  Serious: Yes (Hospitalization)
  Sender: FDA-Public Use
  Company Number: PHHY2011TW71972

PATIENT
  Sex: Male
  Weight: 78 kg

DRUGS (1)
  1. TASIGNA [Suspect]
     Indication: CHRONIC MYELOID LEUKAEMIA
     Dates: start: 20110627, end: 20110714

REACTIONS (7)
  - PERINEAL CYST [None]
  - LEUKOCYTOSIS [None]
  - PERINEAL ABSCESS [None]
  - PERINEAL PAIN [None]
  - PERINEAL INDURATION [None]
  - PYREXIA [None]
  - TENDERNESS [None]
